FAERS Safety Report 7021675-7 (Version None)
Quarter: 2010Q3

REPORT INFORMATION
  Report Type: 
  Country: None (occurrence: None)
  Receive Date: 20100928
  Receipt Date: 20100915
  Transmission Date: 20110219
  Serious: Yes (Hospitalization)
  Sender: FDA-Public Use
  Company Number: TPH-00289

PATIENT
  Age: 0 Day
  Sex: Female

DRUGS (2)
  1. TRIQUILAR [Suspect]
     Dosage: TRANSPLACENTAL
     Route: 064
     Dates: start: 20060101, end: 20090927
  2. METILDOP [Concomitant]

REACTIONS (4)
  - CAESAREAN SECTION [None]
  - JAUNDICE NEONATAL [None]
  - MATERNAL DRUGS AFFECTING FOETUS [None]
  - SMALL FOR DATES BABY [None]
